FAERS Safety Report 15644035 (Version 2)
Quarter: 2018Q4

REPORT INFORMATION
  Report Type: Spontaneous
  Country: IT (occurrence: IT)
  Receive Date: 20181121
  Receipt Date: 20181224
  Transmission Date: 20190205
  Serious: Yes (Disabling)
  Sender: FDA-Public Use
  Company Number: IT-PFIZER INC-2018473338

PATIENT
  Age: 62 Year
  Sex: Female

DRUGS (1)
  1. ZOLEDRONIC ACID [Suspect]
     Active Substance: ZOLEDRONIC ACID
     Dosage: 4 MG, UNK
     Dates: start: 20170101

REACTIONS (7)
  - Hyperkeratosis [Not Recovered/Not Resolved]
  - Exostosis [Not Recovered/Not Resolved]
  - Gingival bleeding [Not Recovered/Not Resolved]
  - Sinusitis [Not Recovered/Not Resolved]
  - Decubitus ulcer [Not Recovered/Not Resolved]
  - Swelling [Not Recovered/Not Resolved]
  - Purulent discharge [Not Recovered/Not Resolved]
